FAERS Safety Report 8397941-X (Version None)
Quarter: 2012Q2

REPORT INFORMATION
  Report Type: 
  Country: None (occurrence: None)
  Receive Date: 20120531
  Receipt Date: 20120521
  Transmission Date: 20120825
  Serious: Yes (Hospitalization)
  Sender: FDA-Public Use
  Company Number: BE-JNJFOC-20111008434

PATIENT
  Sex: Female
  Weight: 56.4 kg

DRUGS (6)
  1. FENTANYL-100 [Concomitant]
     Route: 065
  2. ETHANOL [Interacting]
     Indication: PRODUCT USED FOR UNKNOWN INDICATION
     Route: 065
  3. LIDOCAINE [Concomitant]
     Route: 061
  4. ESTRADIOL [Concomitant]
     Route: 065
     Dates: start: 20090101
  5. TAPENTADOL HYDROCHLORIDE [Suspect]
     Indication: NEURALGIA
     Route: 048
     Dates: start: 20110915, end: 20111008
  6. TAPENTADOL HYDROCHLORIDE [Suspect]
     Indication: BACK PAIN
     Route: 048
     Dates: start: 20110915, end: 20111008

REACTIONS (3)
  - CHEST INJURY [None]
  - DRUG INTERACTION [None]
  - HAND FRACTURE [None]
